FAERS Safety Report 13317699 (Version 1)
Quarter: 2017Q1

REPORT INFORMATION
  Report Type: Other
  Country: FR (occurrence: FR)
  Receive Date: 20170310
  Receipt Date: 20170310
  Transmission Date: 20170428
  Serious: Yes (Death)
  Sender: FDA-Public Use
  Company Number: FR-VALIDUS PHARMACEUTICALS LLC-FR-2017VAL000323

PATIENT
  Age: 55 Year
  Sex: Male

DRUGS (10)
  1. FUROSEMIDE. [Suspect]
     Active Substance: FUROSEMIDE
     Indication: MEDICATION ERROR
     Dosage: 500 MILLIGRAM(S);ONCE
     Route: 048
     Dates: start: 20170106, end: 20170106
  2. VALIUM [Suspect]
     Active Substance: DIAZEPAM
     Indication: PSYCHOTIC DISORDER
     Dosage: 10 MILLIGRAM(S)/MILLILITRE;UNKNOWN
     Route: 048
  3. TEGRETOL [Suspect]
     Active Substance: CARBAMAZEPINE
     Indication: PSYCHOTIC DISORDER
     Dosage: 200 MILLIGRAM(S);DAILY
     Route: 048
  4. KEPPRA [Suspect]
     Active Substance: LEVETIRACETAM
     Indication: EPILEPSY
     Dosage: 500 MILLIGRAM(S);DAILY
     Route: 048
  5. CHARCOAL, ACTIVATED [Suspect]
     Active Substance: ACTIVATED CHARCOAL
     Indication: ACCIDENTAL OVERDOSE
     Dosage: 60 GRAM(S);ONCE
     Route: 048
     Dates: start: 20170106, end: 20170106
  6. MICROPAKINE [Suspect]
     Active Substance: VALPROIC ACID
     Indication: EPILEPSY
     Dosage: 100 MILLIGRAM(S);DAILY
     Route: 048
  7. METOPROLOL TARTRATE. [Suspect]
     Active Substance: METOPROLOL TARTRATE
     Indication: MEDICATION ERROR
     Dosage: 50 MILLIGRAM(S);ONCE
     Route: 048
     Dates: start: 20170106, end: 20170106
  8. CORDARONE [Suspect]
     Active Substance: AMIODARONE HYDROCHLORIDE
     Indication: MEDICATION ERROR
     Dosage: 200 MILLIGRAM(S);ONCE
     Route: 048
     Dates: start: 20170106, end: 20170106
  9. BISOPROLOL FUMARATE. [Suspect]
     Active Substance: BISOPROLOL FUMARATE
     Indication: MEDICATION ERROR
     Dosage: 1.25 MILLIGRAM(S);ONCE
     Route: 048
     Dates: start: 20170106, end: 20170106
  10. LARGACTIL                          /00011901/ [Suspect]
     Active Substance: CHLORPROMAZINE
     Indication: PSYCHOTIC DISORDER
     Dosage: UNK
     Route: 048

REACTIONS (2)
  - Cardiac arrest [Fatal]
  - Medication error [Fatal]

NARRATIVE: CASE EVENT DATE: 20170106
